FAERS Safety Report 6095261-X (Version None)
Quarter: 2009Q1

REPORT INFORMATION
  Report Type: 
  Country: None (occurrence: None)
  Receive Date: 20090227
  Receipt Date: 20080311
  Transmission Date: 20090719
  Serious: No
  Sender: FDA-Public Use
  Company Number: A0711364A

PATIENT
  Age: 18 Year
  Sex: Female

DRUGS (3)
  1. LAMICTAL [Suspect]
     Indication: BIPOLAR DISORDER
     Dosage: 125MG PER DAY
     Route: 048
     Dates: end: 20080216
  2. KLONOPIN [Concomitant]
  3. BIRTH CONTROL PILL [Concomitant]

REACTIONS (3)
  - ARTHROPOD BITE [None]
  - PRURITUS [None]
  - RASH [None]
